FAERS Safety Report 5467050-8 (Version None)
Quarter: 2007Q3

REPORT INFORMATION
  Report Type: 
  Country: None (occurrence: None)
  Receive Date: 20070925
  Receipt Date: 20070921
  Transmission Date: 20080115
  Serious: Yes (Hospitalization)
  Sender: FDA-Public Use
  Company Number: B0488261A

PATIENT
  Age: 78 Year
  Sex: Female

DRUGS (7)
  1. AMOXICILLIN TRIHYDRATE [Suspect]
     Indication: HELICOBACTER INFECTION
     Dosage: 750MG TWICE PER DAY
     Route: 048
     Dates: start: 20070710, end: 20070713
  2. RABEPRAZOLE SODIUM [Suspect]
     Indication: HELICOBACTER INFECTION
     Dosage: 10MG THREE TIMES PER DAY
     Route: 048
     Dates: start: 20070702, end: 20070710
  3. MAGMITT [Concomitant]
     Indication: CONSTIPATION
     Route: 048
     Dates: start: 20070604
  4. OSTELUC [Concomitant]
     Route: 048
     Dates: start: 20070605
  5. MARZULENE [Concomitant]
     Route: 048
     Dates: start: 20070605
  6. FAMOTIDINE [Concomitant]
     Dates: start: 20070419
  7. CLARITHROMYCIN [Concomitant]
     Indication: HELICOBACTER INFECTION
     Dosage: 200MG TWICE PER DAY
     Route: 048
     Dates: start: 20070710, end: 20070713

REACTIONS (1)
  - HYPERKALAEMIA [None]
